FAERS Safety Report 21467566 (Version 3)
Quarter: 2025Q4

REPORT INFORMATION
  Report Type: Spontaneous
  Country: EU (occurrence: EU)
  Receive Date: 20221017
  Receipt Date: 20251203
  Transmission Date: 20260118
  Serious: Yes (Hospitalization, Other)
  Sender: PFIZER
  Company Number: EU-ROCHE-3189292

PATIENT
  Age: 37 Year
  Sex: Female
  Weight: 57.8 kg

DRUGS (7)
  1. EPIRUBICIN HYDROCHLORIDE [Suspect]
     Active Substance: EPIRUBICIN HYDROCHLORIDE
     Indication: Breast cancer
     Dosage: 144 MG, LAST DOSE BEFORE SAE 09/03/2022
     Route: 042
     Dates: start: 20220126, end: 20220309
  2. TRASTUZUMAB [Suspect]
     Active Substance: TRASTUZUMAB
     Indication: Breast cancer
     Dosage: 480 MG (LAST DOSE BEFORE SAE 30MAR2022)
     Route: 042
     Dates: start: 20220330, end: 20220712
  3. PACLITAXEL [Suspect]
     Active Substance: PACLITAXEL
     Indication: Breast cancer
     Dosage: 144 MG (LAST DOSE BEFORE SAE 30MAR2022)
     Route: 042
     Dates: start: 20220330, end: 20220728
  4. CARBOPLATIN [Suspect]
     Active Substance: CARBOPLATIN
     Indication: Breast cancer
     Dosage: 250 MG (LAST DOSE BEFORE SAE 30MAR2022)
     Route: 042
     Dates: start: 20220330, end: 20220706
  5. PERTUZUMAB [Suspect]
     Active Substance: PERTUZUMAB
     Indication: Breast cancer
     Dosage: LAST DOSE BEFORE SAE 30MAR2022
     Route: 042
     Dates: start: 20220330, end: 20220712
  6. CYCLOPHOSPHAMIDE [Suspect]
     Active Substance: CYCLOPHOSPHAMIDE
     Indication: Breast cancer
     Dosage: 960 MG, LAST DOSE BEFORE SAE 09/03/2022
     Route: 042
     Dates: start: 20220126, end: 20220309
  7. ATEZOLIZUMAB [Suspect]
     Active Substance: ATEZOLIZUMAB
     Indication: Breast cancer
     Dosage: 420 MG (LAST DOSE BEFORE SAE 30MAR2022)
     Route: 042
     Dates: start: 20220126, end: 20220406

REACTIONS (2)
  - Infusion related reaction [Recovered/Resolved]
  - Blood pressure decreased [Unknown]

NARRATIVE: CASE EVENT DATE: 20220330
